FAERS Safety Report 21264255 (Version 2)
Quarter: 2025Q3

REPORT INFORMATION
  Report Type: Spontaneous
  Country: US (occurrence: US)
  Receive Date: 20220829
  Receipt Date: 20250703
  Transmission Date: 20251021
  Serious: No
  Sender: TEVA
  Company Number: US-TEVA-2022-US-2064893

PATIENT
  Age: 32 Year
  Sex: Female

DRUGS (1)
  1. FENTANYL CITRATE [Suspect]
     Active Substance: FENTANYL CITRATE
     Indication: Product used for unknown indication
     Route: 048

REACTIONS (1)
  - Speech disorder [Unknown]
